FAERS Safety Report 4710898-5 (Version None)
Quarter: 2005Q3

REPORT INFORMATION
  Report Type: 
  Country: None (occurrence: None)
  Receive Date: 20050705
  Receipt Date: 20050617
  Transmission Date: 20060218
  Serious: Yes (Hospitalization)
  Sender: FDA-Public Use
  Company Number: THYM-10589

PATIENT
  Age: 57 Year
  Sex: Male
  Weight: 76.5 kg

DRUGS (5)
  1. THYMOGLOBULIN [Suspect]
     Indication: RENAL TRANSPLANT
     Dosage: 100 MG QD IV
     Route: 042
     Dates: start: 20040902, end: 20040907
  2. METOPROLOL SUCCINATE [Concomitant]
  3. CYCLOSPORINE [Concomitant]
  4. MYCOPHENOLATE MOFETIL [Concomitant]
  5. VALCYTE [Concomitant]

REACTIONS (9)
  - ABDOMINAL HERNIA [None]
  - ABDOMINAL SEPSIS [None]
  - CLOSTRIDIUM COLITIS [None]
  - INTESTINAL STRANGULATION [None]
  - POST PROCEDURAL URINE LEAK [None]
  - SMALL INTESTINAL OBSTRUCTION [None]
  - URETERAL DISORDER [None]
  - URINE OUTPUT DECREASED [None]
  - WOUND SECRETION [None]
